FAERS Safety Report 24783353 (Version 1)
Quarter: 2024Q4

REPORT INFORMATION
  Report Type: Spontaneous
  Country: JP (occurrence: JP)
  Receive Date: 20241227
  Receipt Date: 20241227
  Transmission Date: 20250115
  Serious: Yes (Hospitalization)
  Sender: AMGEN
  Company Number: JP-AMGEN-JPNSP2024251714

PATIENT
  Age: 92 Year
  Sex: Female

DRUGS (2)
  1. EVENITY [Suspect]
     Active Substance: ROMOSOZUMAB-AQQG
     Indication: Product used for unknown indication
     Dosage: 210 MILLIGRAM
     Route: 058
     Dates: start: 20240209
  2. VITAMIN D [Concomitant]
     Active Substance: VITAMIN D NOS
     Dosage: UNK UNK, QD

REACTIONS (6)
  - Fall [Unknown]
  - Contusion [Unknown]
  - Tooth extraction [Unknown]
  - Skin haemorrhage [Unknown]
  - Senile dementia [Unknown]
  - Gingival recession [Unknown]

NARRATIVE: CASE EVENT DATE: 20240101
